FAERS Safety Report 7337789 (Version 3)
Quarter: 2013Q1

REPORT INFORMATION
  Report Type: Spontaneous
  Country: US (occurrence: US)
  Receive Date: 20100330
  Receipt Date: 20130228
  Transmission Date: 20140127
  Serious: Yes (Other)
  Sender: FDA-Public Use
  Company Number: US-PFIZER INC-2010036047

PATIENT
  Age: 46 Year
  Sex: Female
  Weight: 111 kg

DRUGS (12)
  1. NEURONTIN [Suspect]
     Indication: RESTLESS LEGS SYNDROME
     Dosage: 300 MG, 3X/DAY
     Dates: start: 2000
  2. NEURONTIN [Suspect]
     Indication: TREMOR
     Dosage: 100 MG, 3X/DAY
  3. NEURONTIN [Suspect]
     Indication: PAIN
     Dosage: 600 MG, 4X/DAY
     Route: 048
     Dates: start: 20090827, end: 20100115
  4. GLUCOTROL XL [Concomitant]
     Dosage: UNK
  5. PREMARIN [Concomitant]
     Dosage: UNK
  6. XANAX [Concomitant]
     Dosage: 2 MG, 1X/DAY
     Route: 048
  7. ZOLOFT [Concomitant]
     Dosage: 100 MG, 2X/DAY
     Route: 048
  8. SEROQUEL [Concomitant]
     Dosage: 300 MG, 1X/DAY
     Route: 048
  9. INSULIN DETEMIR [Concomitant]
     Indication: DIABETES MELLITUS
     Dosage: 50 IU, 2X/DAY
  10. NOVOLOG [Concomitant]
     Indication: DIABETES MELLITUS
     Dosage: 70/30
  11. NEXIUM [Concomitant]
     Dosage: 40 MG, 1X/DAY
     Route: 048
  12. LASIX [Concomitant]
     Dosage: 20 MG, 2X/DAY
     Route: 048

REACTIONS (9)
  - Catatonia [Recovered/Resolved]
  - Blood glucose increased [Recovered/Resolved]
  - Depression [Recovered/Resolved]
  - Bedridden [Recovered/Resolved]
  - Chest pain [Recovered/Resolved]
  - Swelling [Recovered/Resolved]
  - Visual impairment [Recovered/Resolved]
  - Cough [Recovered/Resolved]
  - Thinking abnormal [Recovered/Resolved]
